FAERS Safety Report 6222703-9 (Version None)
Quarter: 2009Q2

REPORT INFORMATION
  Report Type: 
  Country: None (occurrence: None)
  Receive Date: 20090609
  Receipt Date: 20090604
  Transmission Date: 20091009
  Serious: Yes (Other)
  Sender: FDA-Public Use
  Company Number: OSCN-PR-0906L-0288

PATIENT
  Age: 43 Year
  Sex: Male

DRUGS (1)
  1. OMNISCAN [Suspect]
     Indication: HIP ARTHROPLASTY
     Dosage: 0.15 MMOL/KG, SINGLE DOSE
     Dates: start: 20061201, end: 20061201

REACTIONS (2)
  - NEPHROGENIC SYSTEMIC FIBROSIS [None]
  - SERUM FERRITIN INCREASED [None]
